FAERS Safety Report 22250245 (Version 1)
Quarter: 2023Q2

REPORT INFORMATION
  Report Type: Spontaneous
  Country: US (occurrence: US)
  Receive Date: 20230425
  Receipt Date: 20230425
  Transmission Date: 20230722
  Serious: No
  Sender: FDA-Public Use
  Company Number: US-BRISTOL-MYERS SQUIBB COMPANY-2023-058642

PATIENT
  Age: 60 Year
  Sex: Male
  Weight: 67.09 kg

DRUGS (1)
  1. REVLIMID [Suspect]
     Active Substance: LENALIDOMIDE
     Indication: Plasma cell myeloma
     Dosage: FREQ: 2W, 1W OFF
     Route: 048

REACTIONS (2)
  - Chest pain [Unknown]
  - Off label use [Unknown]
